FAERS Safety Report 16787587 (Version 1)
Quarter: 2019Q4

REPORT INFORMATION
  Report Type: Spontaneous
  Country: US (occurrence: US)
  Receive Date: 20190909
  Receipt Date: 20190909
  Transmission Date: 20200122
  Serious: Yes (Other)
  Sender: FDA-Public Use
  Company Number: None

PATIENT
  Age: 63 Year
  Sex: Female

DRUGS (2)
  1. NOT REPORTED [Concomitant]
  2. IBRANCE [Suspect]
     Active Substance: PALBOCICLIB
     Indication: BREAST CANCER FEMALE
     Dosage: 125 MG ORAL QD FOR 21/28 DAYS?
     Route: 048
     Dates: start: 20190703

REACTIONS (2)
  - White blood cell count decreased [None]
  - Therapy change [None]

NARRATIVE: CASE EVENT DATE: 20190906
